FAERS Safety Report 6886762-2 (Version None)
Quarter: 2010Q3

REPORT INFORMATION
  Report Type: 
  Country: None (occurrence: None)
  Receive Date: 20100729
  Receipt Date: 20100729
  Transmission Date: 20110219
  Serious: Yes (Hospitalization, Other)
  Sender: FDA-Public Use
  Company Number: None

PATIENT
  Sex: Female
  Weight: 74.8435 kg

DRUGS (1)
  1. AMBIEN [Suspect]

REACTIONS (5)
  - ARTHRITIS [None]
  - BLADDER IRRITATION [None]
  - CARDIAC DISORDER [None]
  - PAIN [None]
  - SCIATICA [None]
